FAERS Safety Report 25753955 (Version 1)
Quarter: 2025Q3

REPORT INFORMATION
  Report Type: Spontaneous
  Country: US (occurrence: US)
  Receive Date: 20250903
  Receipt Date: 20250903
  Transmission Date: 20251021
  Serious: Yes (Death, Other)
  Sender: BAYER HEALTHCARE LLC
  Company Number: US-BAYER-2025A114294

PATIENT
  Sex: Male

DRUGS (2)
  1. LOTRIMIN ANTIFUNGAL (MICONAZOLE NITRATE) [Suspect]
     Active Substance: MICONAZOLE NITRATE
  2. TINACTIN [Suspect]
     Active Substance: TOLNAFTATE

REACTIONS (4)
  - Pleural mesothelioma malignant [Fatal]
  - Exposure to chemical pollution [None]
  - Injury [None]
  - Lung disorder [None]

NARRATIVE: CASE EVENT DATE: 20231211
